FAERS Safety Report 8219807-8 (Version None)
Quarter: 2012Q1

REPORT INFORMATION
  Report Type: 
  Country: None (occurrence: None)
  Receive Date: 20120319
  Receipt Date: 20120312
  Transmission Date: 20120608
  Serious: Yes (Hospitalization, Other)
  Sender: FDA-Public Use
  Company Number: US-ASTRAZENECA-2012SE17059

PATIENT
  Age: 58 Year
  Sex: Male

DRUGS (4)
  1. METFORMIN HYDROCHLORIDE [Concomitant]
  2. CRESTOR [Suspect]
     Route: 048
  3. JANUVIA [Concomitant]
  4. XANAX [Concomitant]

REACTIONS (12)
  - FEELING ABNORMAL [None]
  - INTERVERTEBRAL DISC PROTRUSION [None]
  - MALAISE [None]
  - DIABETES MELLITUS [None]
  - BACK DISORDER [None]
  - BACK PAIN [None]
  - BLOOD CHOLESTEROL INCREASED [None]
  - FALL [None]
  - ASTHENIA [None]
  - DEPRESSION [None]
  - PANIC ATTACK [None]
  - DRUG DOSE OMISSION [None]
